FAERS Safety Report 7461784 (Version 4)
Quarter: 2012Q4

REPORT INFORMATION
  Report Type: Report from Study
  Country: IL (occurrence: IL)
  Receive Date: 20100709
  Receipt Date: 20121203
  Transmission Date: 20130627
  Serious: Yes (Hospitalization, Other)
  Sender: FDA-Public Use
  Company Number: IL-GENZYME-POMP-1000986

PATIENT
  Age: 4 Year
  Sex: Male

DRUGS (3)
  1. MYOZYME [Suspect]
     Indication: GLYCOGEN STORAGE DISEASE TYPE II
     Dosage: 20 mg/kg, q2w
     Route: 042
     Dates: start: 20060531
  2. CYTOXAN [Suspect]
     Indication: IMMUNOSUPPRESSION
  3. IMMUNOGLOBULIN [Suspect]
     Indication: IMMUNOSUPPRESSION

REACTIONS (3)
  - Cardiac hypertrophy [Not Recovered/Not Resolved]
  - Hypertrophic cardiomyopathy [Not Recovered/Not Resolved]
  - Atelectasis [Recovered/Resolved]
